FAERS Safety Report 8593442 (Version 4)
Quarter: 2013Q3

REPORT INFORMATION
  Report Type: Spontaneous
  Country: US (occurrence: US)
  Receive Date: 20120604
  Receipt Date: 20130827
  Transmission Date: 20140515
  Serious: Yes (Hospitalization, Disabling, Other)
  Sender: FDA-Public Use
  Company Number: US-BAYER-2012-053406

PATIENT
  Age: 18 Year
  Sex: Female
  Weight: 73 kg

DRUGS (9)
  1. YAZ [Suspect]
     Indication: CONTRACEPTION
  2. YASMIN [Suspect]
     Indication: ACNE
     Dosage: UNK
     Dates: start: 2004, end: 200703
  3. YASMIN [Suspect]
     Indication: CONTRACEPTION
  4. ACETAZOLAMIDE [Concomitant]
  5. FIORICET [Concomitant]
  6. ADVIL [Concomitant]
  7. REGLAN [Concomitant]
  8. ZOFRAN [Concomitant]
  9. ANALGESICS [Concomitant]

REACTIONS (15)
  - Cerebrovascular accident [None]
  - Blindness [None]
  - Intracranial venous sinus thrombosis [None]
  - Vasculitis cerebral [None]
  - Intracranial venous sinus thrombosis [None]
  - Cavernous sinus thrombosis [None]
  - Superior sagittal sinus thrombosis [None]
  - Retinal vein thrombosis [None]
  - Injury [None]
  - Pain [None]
  - Emotional distress [None]
  - Complicated migraine [None]
  - Visual field defect [None]
  - Papilloedema [None]
  - Intracranial pressure increased [None]
